FAERS Safety Report 16088417 (Version 1)
Quarter: 2019Q1

REPORT INFORMATION
  Report Type: Spontaneous
  Country: JP (occurrence: JP)
  Receive Date: 20190319
  Receipt Date: 20190319
  Transmission Date: 20190418
  Serious: Yes (Hospitalization, Other)
  Sender: FDA-Public Use
  Company Number: JP-VIIV HEALTHCARE LIMITED-JP2019GSK045687

PATIENT
  Age: 68 Year
  Sex: Female

DRUGS (2)
  1. ADEFOVIR [Suspect]
     Active Substance: ADEFOVIR
     Indication: CHRONIC HEPATITIS B
     Dosage: 10 MG, QD
     Route: 048
  2. LAMIVUDINE. [Suspect]
     Active Substance: LAMIVUDINE
     Indication: CHRONIC HEPATITIS B
     Dosage: 100 MG, QD
     Route: 048

REACTIONS (5)
  - Myopathy toxic [Unknown]
  - Muscle atrophy [Unknown]
  - Muscular weakness [Unknown]
  - Mitochondrial DNA deletion [Unknown]
  - Lactate pyruvate ratio increased [Unknown]
